FAERS Safety Report 7408891-7 (Version None)
Quarter: 2011Q2

REPORT INFORMATION
  Report Type: 
  Country: None (occurrence: None)
  Receive Date: 20110412
  Receipt Date: 20110408
  Transmission Date: 20111010
  Serious: Yes (Death, Other)
  Sender: FDA-Public Use
  Company Number: PHHY2009CA33991

PATIENT
  Sex: Male

DRUGS (2)
  1. ZOMETA [Suspect]
     Indication: PROSTATE CANCER METASTATIC
     Dosage: 4 MG EVERY 12 WEEKS
     Route: 042
     Dates: start: 20090616
  2. TRAMADOL HYDROCHLORIDE/ACETAMINOPHEN [Concomitant]

REACTIONS (4)
  - HAEMOGLOBIN DECREASED [None]
  - DEATH [None]
  - BLOOD UREA INCREASED [None]
  - ARTHRALGIA [None]
